FAERS Safety Report 9337247 (Version 2)
Quarter: 2013Q2

REPORT INFORMATION
  Report Type: Report from Study
  Country: US (occurrence: US)
  Receive Date: 20130607
  Receipt Date: 20130625
  Transmission Date: 20140414
  Serious: Yes (Other)
  Sender: FDA-Public Use
  Company Number: US-JNJFOC-20130600386

PATIENT
  Age: 15 Year
  Sex: Female
  Weight: 44 kg

DRUGS (10)
  1. REMICADE [Suspect]
     Indication: INFLAMMATORY BOWEL DISEASE
     Route: 042
     Dates: start: 20120427
  2. 5-AMINOSALICYLIC ACID [Concomitant]
     Route: 048
  3. OFLOXACIN [Concomitant]
     Route: 065
  4. OXYCODONE [Concomitant]
     Route: 065
  5. MORPHINE [Concomitant]
     Route: 065
  6. LACTOSE [Concomitant]
     Route: 065
  7. OMEPRAZOLE [Concomitant]
     Route: 065
  8. LEVSIN [Concomitant]
     Route: 065
  9. ACETAMINOPHEN [Concomitant]
     Route: 065
  10. MIDAZOLAM [Concomitant]
     Route: 065

REACTIONS (1)
  - Hearing impaired [Recovered/Resolved]
